FAERS Safety Report 6098043-8 (Version None)
Quarter: 2009Q1

REPORT INFORMATION
  Report Type: 
  Country: None (occurrence: None)
  Receive Date: 20090227
  Receipt Date: 20090225
  Transmission Date: 20090719
  Serious: Yes (Life-Threatening, Other)
  Sender: FDA-Public Use
  Company Number: PHHY2009JP03905

PATIENT
  Age: 9 Year
  Sex: Male
  Weight: 30 kg

DRUGS (3)
  1. SIMULECT [Suspect]
     Indication: RENAL TRANSPLANT
     Dosage: 20 MG, ONCE/SINGLE
     Route: 042
     Dates: start: 20090130, end: 20090130
  2. CEFAMEZIN [Concomitant]
     Dosage: UNK
     Route: 042
     Dates: start: 20090130
  3. FOY [Concomitant]
     Dosage: UNK
     Route: 042
     Dates: start: 20090130, end: 20090130

REACTIONS (10)
  - ANAPHYLACTIC SHOCK [None]
  - BLOOD GLUCOSE INCREASED [None]
  - BLOOD PRESSURE DECREASED [None]
  - LYMPHOCYTE COUNT DECREASED [None]
  - MONOCYTE COUNT DECREASED [None]
  - NEUTROPHIL COUNT INCREASED [None]
  - OXYGEN SATURATION DECREASED [None]
  - RETRO-PERITONEAL SPACE OPERATION [None]
  - SKIN OPERATION [None]
  - WHITE BLOOD CELL COUNT INCREASED [None]
